FAERS Safety Report 7595515-1 (Version None)
Quarter: 2011Q3

REPORT INFORMATION
  Report Type: 
  Country: None (occurrence: None)
  Receive Date: 20110707
  Receipt Date: 20110701
  Transmission Date: 20111222
  Serious: Yes (Death, Hospitalization)
  Sender: FDA-Public Use
  Company Number: IT-GLAXOSMITHKLINE-B0729461A

PATIENT
  Sex: Male
  Weight: 80 kg

DRUGS (4)
  1. DESAMETASONE [Concomitant]
     Indication: INFLAMMATION
     Dosage: 40MG PER DAY
     Route: 042
     Dates: start: 20110617, end: 20110628
  2. PREDNISONE [Concomitant]
     Dosage: 50MG PER DAY
     Route: 048
     Dates: start: 20110613, end: 20110617
  3. OFATUMUMAB [Suspect]
     Indication: CHRONIC LYMPHOCYTIC LEUKAEMIA
     Dosage: 1000MG CUMULATIVE DOSE
     Route: 042
     Dates: start: 20110530
  4. BENDAMUSTINE [Suspect]
     Indication: CHRONIC LYMPHOCYTIC LEUKAEMIA
     Dosage: 68MG CUMULATIVE DOSE
     Route: 042
     Dates: start: 20110531

REACTIONS (3)
  - HYPERURICAEMIA [None]
  - SEPSIS [None]
  - HYPERCALCAEMIA [None]
